FAERS Safety Report 16400813 (Version 2)
Quarter: 2019Q3

REPORT INFORMATION
  Report Type: Report from Study
  Country: US (occurrence: US)
  Receive Date: 20190606
  Receipt Date: 20190702
  Transmission Date: 20191004
  Serious: Yes (Other)
  Sender: FDA-Public Use
  Company Number: US-GILEAD-2019-0412190

PATIENT
  Sex: Male

DRUGS (1)
  1. RANOLAZINE. [Suspect]
     Active Substance: RANOLAZINE
     Indication: ANGINA PECTORIS
     Dosage: 1000 MG, BID
     Route: 048
     Dates: start: 20171219

REACTIONS (6)
  - Coronary artery disease [Not Recovered/Not Resolved]
  - Coronary arterial stent insertion [Unknown]
  - Transient ischaemic attack [Not Recovered/Not Resolved]
  - Vascular graft [Unknown]
  - Hospice care [Not Recovered/Not Resolved]
  - Product dose omission [Unknown]
